FAERS Safety Report 10189710 (Version 2)
Quarter: 2014Q2

REPORT INFORMATION
  Report Type: Spontaneous
  Country: US (occurrence: US)
  Receive Date: 20140522
  Receipt Date: 20140522
  Transmission Date: 20141212
  Serious: Yes (Other)
  Sender: FDA-Public Use
  Company Number: US-SANOFI-AVENTIS-2012SA022581

PATIENT
  Sex: Male

DRUGS (5)
  1. LANTUS [Suspect]
     Route: 058
  2. NOVOLOG [Suspect]
     Route: 065
  3. JANUMET [Suspect]
     Route: 065
  4. HUMALIN [Suspect]
     Route: 065
  5. ANTIHYPERTENSIVES [Concomitant]

REACTIONS (2)
  - Hypoglycaemic coma [Unknown]
  - Blood glucose increased [Unknown]
